FAERS Safety Report 26131197 (Version 1)
Quarter: 2025Q4

REPORT INFORMATION
  Report Type: Spontaneous
  Country: US (occurrence: US)
  Receive Date: 20251208
  Receipt Date: 20251208
  Transmission Date: 20260117
  Serious: Yes (Other)
  Sender: OTSUKA
  Company Number: US-OTSUKA-2025_023372

PATIENT
  Age: 48 Year
  Sex: Male
  Weight: 77.1 kg

DRUGS (7)
  1. REXULTI [Suspect]
     Active Substance: BREXPIPRAZOLE
     Indication: Major depression
     Dosage: 1 MG (INCREASED DOSE)
     Route: 065
     Dates: start: 20250617, end: 20250902
  2. REXULTI [Suspect]
     Active Substance: BREXPIPRAZOLE
     Indication: Adjuvant therapy
     Dosage: 1 DF, DAILY (2 MG , TAKES ONE TABLET BY MOUTH DAILY) (INCREASED DOSE)
     Dates: start: 20250902, end: 202510
  3. REXULTI [Suspect]
     Active Substance: BREXPIPRAZOLE
     Indication: Persistent depressive disorder
     Dosage: 0.5 MG
     Route: 065
     Dates: start: 20241105, end: 20250617
  4. REXULTI [Suspect]
     Active Substance: BREXPIPRAZOLE
     Dosage: 1 MG, QD (REDUCED DOSE)
     Dates: start: 20251014
  5. BUPROPION [Concomitant]
     Active Substance: BUPROPION
     Indication: Product used for unknown indication
     Dosage: 200 MG+150 MG (TOTAL 350 MG) (SUSTAINED RELEASE)
     Route: 065
  6. LORAZEPAM [Concomitant]
     Active Substance: LORAZEPAM
     Indication: Product used for unknown indication
     Dosage: 0.6 MG
     Route: 065
  7. BENZTROPINE [Concomitant]
     Active Substance: BENZTROPINE
     Indication: Drug therapy enhancement
     Dosage: 0.6 MG
     Route: 065

REACTIONS (7)
  - Joint lock [Recovered/Resolved]
  - Self-injurious ideation [Recovered/Resolved]
  - Depressed mood [Recovering/Resolving]
  - Grief reaction [Recovering/Resolving]
  - Stress [Recovering/Resolving]
  - Muscle twitching [Recovered/Resolved]
  - Product use in unapproved indication [Unknown]

NARRATIVE: CASE EVENT DATE: 20241101
